FAERS Safety Report 11638953 (Version 2)
Quarter: 2015Q4

REPORT INFORMATION
  Report Type: Report from Study
  Country: CO (occurrence: CO)
  Receive Date: 20151018
  Receipt Date: 20151020
  Transmission Date: 20160304
  Serious: Yes (Death, Other)
  Sender: FDA-Public Use
  Company Number: CO-ABBVIE-15P-036-1483581-00

PATIENT
  Age: 75 Year
  Sex: Female

DRUGS (1)
  1. ZEMPLAR [Suspect]
     Active Substance: PARICALCITOL
     Indication: HYPERPARATHYROIDISM SECONDARY
     Dosage: 1 POST-DIALYSIS
     Route: 042
     Dates: start: 20150923, end: 20151001

REACTIONS (2)
  - Aspiration [Fatal]
  - Arthropathy [Unknown]

NARRATIVE: CASE EVENT DATE: 20151002
